FAERS Safety Report 4343236-0 (Version None)
Quarter: 2004Q2

REPORT INFORMATION
  Report Type: 
  Country: None (occurrence: None)
  Receive Date: 20040421
  Receipt Date: 20040415
  Transmission Date: 20050107
  Serious: Yes (Other)
  Sender: FDA-Public Use
  Company Number: GB-MERCK-0404GBR00108

PATIENT
  Age: 3 Year
  Sex: Female
  Weight: 13 kg

DRUGS (10)
  1. ASPARAGINASE (AS DRUG) AND POLYETHYLENE GLYCOL [Suspect]
     Indication: ACUTE LYMPHOCYTIC LEUKAEMIA
     Route: 065
     Dates: start: 20040308, end: 20040308
  2. ASPARAGINASE (AS DRUG) AND POLYETHYLENE GLYCOL [Suspect]
     Route: 065
     Dates: start: 20040322, end: 20040322
  3. DECADRON [Suspect]
     Indication: ACUTE LYMPHOCYTIC LEUKAEMIA
     Route: 048
     Dates: start: 20040303, end: 20040101
  4. DECADRON [Suspect]
     Route: 048
     Dates: start: 20040101, end: 20040406
  5. ENOXAPARIN SODIUM [Concomitant]
     Route: 065
     Dates: start: 20040327
  6. SULFAMETHOXAZOLE AND TRIMETHOPRIM [Concomitant]
     Indication: INFECTION PROPHYLAXIS
     Route: 065
     Dates: start: 20040308, end: 20040309
  7. SULFAMETHOXAZOLE AND TRIMETHOPRIM [Concomitant]
     Route: 065
     Dates: start: 20040315, end: 20040316
  8. SULFAMETHOXAZOLE AND TRIMETHOPRIM [Concomitant]
     Route: 065
     Dates: start: 20040322, end: 20040323
  9. SULFAMETHOXAZOLE AND TRIMETHOPRIM [Concomitant]
     Route: 065
     Dates: start: 20040329, end: 20040330
  10. VINCRISTINE SULFATE [Concomitant]
     Indication: ACUTE LYMPHOCYTIC LEUKAEMIA
     Route: 065
     Dates: start: 20040305, end: 20040319

REACTIONS (2)
  - HEPATOMEGALY [None]
  - HYPERTRIGLYCERIDAEMIA [None]
